FAERS Safety Report 7792128-3 (Version None)
Quarter: 2011Q3

REPORT INFORMATION
  Report Type: 
  Country: None (occurrence: None)
  Receive Date: 20110929
  Receipt Date: 20110920
  Transmission Date: 20111222
  Serious: Yes (Hospitalization)
  Sender: FDA-Public Use
  Company Number: AUR-APL-2011-05216

PATIENT
  Age: 71 Year
  Sex: Female
  Weight: 82.5 kg

DRUGS (1)
  1. METFORMIN HYDROCHLORIDE [Suspect]
     Indication: DIABETES MELLITUS
     Dates: end: 20110101

REACTIONS (1)
  - DRUG HYPERSENSITIVITY [None]
